FAERS Safety Report 24130311 (Version 2)
Quarter: 2025Q1

REPORT INFORMATION
  Report Type: Spontaneous
  Country: BR (occurrence: BR)
  Receive Date: 20240724
  Receipt Date: 20250110
  Transmission Date: 20250409
  Serious: Yes (Other)
  Sender: JOHNSON AND JOHNSON
  Company Number: BR-JNJFOC-20240749082

PATIENT
  Age: 45 Year
  Sex: Male

DRUGS (1)
  1. RYBREVANT [Suspect]
     Active Substance: AMIVANTAMAB-VMJW
     Indication: Product used for unknown indication
     Route: 065

REACTIONS (7)
  - Pulmonary congestion [Unknown]
  - Depressed level of consciousness [Unknown]
  - Bronchospasm [Unknown]
  - Infusion related reaction [Unknown]
  - Tremor [Unknown]
  - Hypotension [Unknown]
  - Hyperhidrosis [Unknown]
